FAERS Safety Report 5831773-9 (Version None)
Quarter: 2008Q3

REPORT INFORMATION
  Report Type: 
  Country: None (occurrence: None)
  Receive Date: 20080803
  Receipt Date: 20080728
  Transmission Date: 20090109
  Serious: Yes (Death, Other)
  Sender: FDA-Public Use
  Company Number: PHEH2008US02471

PATIENT
  Sex: Male
  Weight: 112.47 kg

DRUGS (5)
  1. ZOMETA [Suspect]
     Dosage: UNK
     Dates: start: 20051130, end: 20060323
  2. LEXAPRO [Concomitant]
  3. NEXIUM [Concomitant]
  4. TAXOL [Concomitant]
     Dosage: UNK
     Dates: start: 20051130
  5. PEMETREXED [Concomitant]
     Dosage: UNK
     Dates: start: 20051220, end: 20060615

REACTIONS (14)
  - DEATH [None]
  - FLANK PAIN [None]
  - GENERAL PHYSICAL HEALTH DETERIORATION [None]
  - GINGIVAL DISORDER [None]
  - INFECTION [None]
  - JAW DISORDER [None]
  - JAW OPERATION [None]
  - LUNG CARCINOMA CELL TYPE UNSPECIFIED RECURRENT [None]
  - METASTASES TO BONE [None]
  - METASTATIC PAIN [None]
  - MUSCULOSKELETAL PAIN [None]
  - NECK PAIN [None]
  - OSTEONECROSIS [None]
  - PAIN [None]
